FAERS Safety Report 4410987-9 (Version None)
Quarter: 2004Q3

REPORT INFORMATION
  Report Type: 
  Country: None (occurrence: None)
  Receive Date: 20040729
  Receipt Date: 20040720
  Transmission Date: 20050211
  Serious: Yes (Other)
  Sender: FDA-Public Use
  Company Number: PT-GLAXOSMITHKLINE-B0340208A

PATIENT
  Age: 41 Year
  Sex: Female

DRUGS (3)
  1. AMOXICILLIN [Suspect]
     Route: 048
     Dates: start: 20040202
  2. CLARITHROMYCIN [Suspect]
     Route: 048
     Dates: start: 20040202
  3. OMEPRAZOLE [Concomitant]
     Route: 048
     Dates: start: 20040202

REACTIONS (3)
  - DYSPNOEA [None]
  - FACE OEDEMA [None]
  - URTICARIA GENERALISED [None]
